FAERS Safety Report 23790852 (Version 1)
Quarter: 2024Q2

REPORT INFORMATION
  Report Type: Spontaneous
  Country: US (occurrence: US)
  Receive Date: 20240427
  Receipt Date: 20240427
  Transmission Date: 20240716
  Serious: No
  Sender: FDA-Public Use
  Company Number: US-GSK-US2024049972

PATIENT
  Sex: Female

DRUGS (1)
  1. BENLYSTA [Suspect]
     Active Substance: BELIMUMAB
     Indication: Cutaneous sarcoidosis
     Dosage: 200 MG

REACTIONS (3)
  - Product dose omission issue [Unknown]
  - Insurance issue [Unknown]
  - Product use in unapproved indication [Unknown]
